FAERS Safety Report 7926961-1 (Version None)
Quarter: 2011Q4

REPORT INFORMATION
  Report Type: 
  Country: None (occurrence: None)
  Receive Date: 20111118
  Receipt Date: 20111110
  Transmission Date: 20120403
  Serious: Yes (Hospitalization)
  Sender: FDA-Public Use
  Company Number: JP-JNJFOC-20111011840

PATIENT
  Sex: Male

DRUGS (3)
  1. MUCOSTA [Suspect]
     Indication: PROPHYLAXIS
     Route: 048
     Dates: start: 20111015, end: 20111022
  2. DORIPENEM MONOHYDRATE [Suspect]
     Indication: CELLULITIS
     Dosage: ^DR^
     Route: 041
     Dates: start: 20111015, end: 20111022
  3. LOXONIN [Suspect]
     Indication: CELLULITIS
     Route: 048
     Dates: start: 20111015, end: 20111022

REACTIONS (1)
  - THROMBOCYTOSIS [None]
